FAERS Safety Report 5308870-X (Version None)
Quarter: 2007Q2

REPORT INFORMATION
  Report Type: 
  Country: None (occurrence: None)
  Receive Date: 20070418
  Receipt Date: 20070321
  Transmission Date: 20071010
  Serious: Yes (Other)
  Sender: FDA-Public Use
  Company Number: 200610374BBE

PATIENT
  Age: 59 Year
  Sex: Male
  Weight: 71.3 kg

DRUGS (5)
  1. IMMUNE GLOBULIN (HUMAN) [Suspect]
     Indication: CHRONIC INFLAMMATORY DEMYELINATING POLYRADICULONEUROPATHY
     Dosage: 45 GM
     Dates: start: 20050408, end: 20050408
  2. TICLID (CON.) [Concomitant]
  3. LIPITOR (CON.) [Concomitant]
  4. PAXIL (CON.) [Concomitant]
  5. PREVACID (CON.) [Concomitant]

REACTIONS (4)
  - DYSPNOEA [None]
  - INFUSION RELATED REACTION [None]
  - LOSS OF CONSCIOUSNESS [None]
  - SHOCK [None]
